FAERS Safety Report 8956773 (Version 2)
Quarter: 2013Q2

REPORT INFORMATION
  Report Type: Spontaneous
  Country: US (occurrence: US)
  Receive Date: 20121210
  Receipt Date: 20130419
  Transmission Date: 20140414
  Serious: Yes (Other)
  Sender: FDA-Public Use
  Company Number: CHPA2012US024509

PATIENT
  Age: 71 Year
  Sex: Female

DRUGS (3)
  1. 4 WAY MENTHOLATED NASAL SPRAY [Suspect]
     Dosage: 1 DF, UNK
     Route: 045
  2. EQUATE NASAL [Suspect]
     Dosage: 2 DF, UNK
     Route: 045
  3. PLAVIX [Concomitant]
     Dosage: UNK, UNK
     Route: 048

REACTIONS (9)
  - Asthma [Recovered/Resolved]
  - Chronic obstructive pulmonary disease [Not Recovered/Not Resolved]
  - Emphysema [Not Recovered/Not Resolved]
  - Transient ischaemic attack [Recovered/Resolved]
  - Upper respiratory tract infection [Recovered/Resolved]
  - Ear congestion [Recovered/Resolved]
  - Nasal congestion [Not Recovered/Not Resolved]
  - Multiple allergies [Not Recovered/Not Resolved]
  - Underdose [Unknown]
